FAERS Safety Report 8261256-0 (Version None)
Quarter: 2012Q2

REPORT INFORMATION
  Report Type: 
  Country: None (occurrence: None)
  Receive Date: 20120405
  Receipt Date: 20120402
  Transmission Date: 20120825
  Serious: Yes (Other)
  Sender: FDA-Public Use
  Company Number: US-AMGEN-USASP2011069480

PATIENT
  Age: 62 Year
  Sex: Female

DRUGS (2)
  1. METHOTREXATE [Concomitant]
     Indication: RHEUMATOID ARTHRITIS
     Dosage: 8 TABS, 2.5 MG, QWK
     Route: 048
     Dates: start: 20080101, end: 20111101
  2. ENBREL [Suspect]
     Indication: RHEUMATOID ARTHRITIS
     Dosage: 50 MG, QWK
     Route: 058
     Dates: start: 20080101, end: 20111101

REACTIONS (4)
  - ARTHROPOD BITE [None]
  - BREAST CANCER [None]
  - FOOT OPERATION [None]
  - DRUG EFFECT DECREASED [None]
